FAERS Safety Report 4652698-0 (Version None)
Quarter: 2005Q2

REPORT INFORMATION
  Report Type: 
  Country: None (occurrence: None)
  Receive Date: 20050502
  Receipt Date: 20050422
  Transmission Date: 20051028
  Serious: Yes (Other)
  Sender: FDA-Public Use
  Company Number: GBWYE608222APR05

PATIENT
  Sex: Female

DRUGS (1)
  1. ADVIL [Suspect]
     Dosage: 200 MG 2X PER 1 TOT, ORAL
     Route: 048
     Dates: start: 20050407, end: 20050407

REACTIONS (3)
  - PANIC REACTION [None]
  - PRURITUS GENERALISED [None]
  - RASH PRURITIC [None]
